FAERS Safety Report 8790486 (Version 3)
Quarter: 2013Q1

REPORT INFORMATION
  Report Type: Spontaneous
  Country: GB (occurrence: None)
  Receive Date: 20120830
  Receipt Date: 20121107
  Transmission Date: 20140127
  Serious: Yes (Other)
  Sender: FDA-Public Use
  Company Number: 2012033198

PATIENT
  Age: 32 Year
  Sex: Male

DRUGS (13)
  1. PRIVIGEN (IMMUNE GLOBULIN INTRAVENOUS (HUMAN) 10% LIQUID) [Suspect]
     Dosage: INTRAVENOUS, 25 GMS IN 3WKS, SINCE 3 YEARS
     Dates: start: 20090609
  2. SANDOGLOBULIN [Suspect]
     Route: 042
     Dates: start: 20070814, end: 20081125
  3. METHADONE (METHADONE) [Concomitant]
  4. SERETIDE (FLUTICASONE PROPIONATE W/SALMETEROL) [Concomitant]
  5. VENTOLIN (SALBUTAMOL) [Concomitant]
  6. AZITHROMYCIN (AZITHROMYCIN) [Concomitant]
  7. CARBOCISTEINE (CARBOCISTEINE) [Concomitant]
  8. MIRTAZAPINE (MIRTAZAPINE) [Concomitant]
  9. MEBEVERINE (MEBEVERINE) [Concomitant]
  10. LOPERAMIDE (LOPERAMIDE) [Concomitant]
  11. PARACETAMOL (PARACETAMOL) [Concomitant]
  12. IBUPROFEN (IBUPROFEN) [Concomitant]
  13. COAL TAR (COAL TAR) [Concomitant]

REACTIONS (2)
  - Suspected transmission of an infectious agent via product [None]
  - Hepatitis C [None]
